FAERS Safety Report 14929132 (Version 1)
Quarter: 2018Q2

REPORT INFORMATION
  Report Type: Spontaneous
  Country: US (occurrence: US)
  Receive Date: 20180504
  Receipt Date: 20180504
  Transmission Date: 20180711
  Serious: Yes (Death)
  Sender: FDA-Public Use
  Company Number: None

PATIENT
  Sex: Male

DRUGS (27)
  1. ALCOHOL PREP PAD [Concomitant]
     Active Substance: ISOPROPYL ALCOHOL
  2. DICLOFENAC [Concomitant]
     Active Substance: DICLOFENAC
  3. AMOXICILLIN. [Concomitant]
     Active Substance: AMOXICILLIN
  4. SANDIMMUNE [Suspect]
     Active Substance: CYCLOSPORINE
     Indication: TRANSPLANT
     Route: 048
     Dates: start: 20160818
  5. VALACYCLOVIR [Concomitant]
     Active Substance: VALACYCLOVIR HYDROCHLORIDE
  6. ZOLPIDEM [Concomitant]
     Active Substance: ZOLPIDEM\ZOLPIDEM TARTRATE
  7. CHLORHEX GLU SOL [Concomitant]
  8. SODIUM BICAR [Concomitant]
  9. LANTUS [Concomitant]
     Active Substance: INSULIN GLARGINE
  10. AMOX/K CLAV [Concomitant]
     Active Substance: AMOXICILLIN\CLAVULANATE POTASSIUM
  11. OMEPRAZOLE. [Concomitant]
     Active Substance: OMEPRAZOLE
  12. INSULIN [Concomitant]
     Active Substance: INSULIN NOS
  13. HUMALOG [Concomitant]
     Active Substance: INSULIN LISPRO
  14. LIDOCAINE. [Concomitant]
     Active Substance: LIDOCAINE
  15. OSELTAMIVIR [Concomitant]
     Active Substance: OSELTAMIVIR
  16. CYCLOSPORINE. [Concomitant]
     Active Substance: CYCLOSPORINE
  17. WARFARIN [Concomitant]
     Active Substance: WARFARIN
  18. LANTUS [Concomitant]
     Active Substance: INSULIN GLARGINE
  19. NYSTATIN. [Concomitant]
     Active Substance: NYSTATIN
  20. CLOPIDOGREL [Concomitant]
     Active Substance: CLOPIDOGREL BISULFATE
  21. ALLOPURINOL. [Concomitant]
     Active Substance: ALLOPURINOL
  22. ROSUVASTATIN. [Concomitant]
     Active Substance: ROSUVASTATIN
  23. DICYCLOMINE [Concomitant]
     Active Substance: DICYCLOMINE HYDROCHLORIDE
  24. ADVAIR DISKU [Concomitant]
  25. METOPROL SUCC [Concomitant]
  26. VALGANCICLOV [Concomitant]
  27. WARFARIN [Concomitant]
     Active Substance: WARFARIN

REACTIONS (1)
  - Death [None]
